FAERS Safety Report 9347801 (Version 1)
Quarter: 2013Q2

REPORT INFORMATION
  Report Type: Spontaneous
  Country: US (occurrence: US)
  Receive Date: 20130614
  Receipt Date: 20130614
  Transmission Date: 20140414
  Serious: No
  Sender: FDA-Public Use
  Company Number: US-PFIZER INC-2013176357

PATIENT
  Age: 64 Year
  Sex: Female

DRUGS (4)
  1. EFFEXOR [Suspect]
     Indication: FIBROMYALGIA
     Dosage: 150 MG, 1X/DAY (1 IN 1 D)
     Route: 048
  2. EFFEXOR [Suspect]
     Indication: DEPRESSION
  3. SAVELLA [Suspect]
     Indication: FIBROMYALGIA
     Dosage: UNK
     Dates: start: 201305, end: 201305
  4. NEURONTIN [Concomitant]
     Dosage: UNK

REACTIONS (6)
  - Nausea [Not Recovered/Not Resolved]
  - Headache [Not Recovered/Not Resolved]
  - Eye pain [Not Recovered/Not Resolved]
  - Chills [Not Recovered/Not Resolved]
  - Influenza like illness [Not Recovered/Not Resolved]
  - Off label use [Unknown]
